FAERS Safety Report 11074215 (Version 1)
Quarter: 2015Q2

REPORT INFORMATION
  Report Type: Spontaneous
  Country: US (occurrence: None)
  Receive Date: 20150428
  Receipt Date: 20150428
  Transmission Date: 20150821
  Serious: No
  Sender: FDA-Public Use
  Company Number: None

PATIENT
  Age: 68 Year
  Sex: Female
  Weight: 81.19 kg

DRUGS (15)
  1. LOSARTAN POT 50 MG TAB. FOR COZAAR 50 MG AUROBINDO [Suspect]
     Active Substance: LOSARTAN POTASSIUM
     Indication: HYPERTENSION
     Route: 048
     Dates: start: 20150112, end: 20150302
  2. MONTELUKAST [Concomitant]
     Active Substance: MONTELUKAST SODIUM
  3. ATORVASTATIN [Concomitant]
     Active Substance: ATORVASTATIN
  4. ESOMOPIRA [Concomitant]
  5. D3 - 2000 IU [Concomitant]
  6. CENTRUM A- ZINC VITAMIN [Concomitant]
  7. TOMERODINE [Concomitant]
  8. OSCAL- CALCIUM +D3 [Concomitant]
  9. FUROSEMIDE. [Concomitant]
     Active Substance: FUROSEMIDE
  10. CARVEDILOL. [Concomitant]
     Active Substance: CARVEDILOL
  11. REFRESG OPTIC ADV. LUBRIOANT EYE DROPS BOXER LOW DOSE [Concomitant]
  12. ANASTROZOLE. [Concomitant]
     Active Substance: ANASTROZOLE
  13. EPPI PEN [Concomitant]
  14. ALLERGRA D [Concomitant]
  15. FLOVENT HFA [Concomitant]
     Active Substance: FLUTICASONE PROPIONATE

REACTIONS (5)
  - Feeling abnormal [None]
  - Depressed level of consciousness [None]
  - Asthenia [None]
  - Product substitution issue [None]
  - Product quality issue [None]

NARRATIVE: CASE EVENT DATE: 20150115
